FAERS Safety Report 4618304-6 (Version None)
Quarter: 2005Q1

REPORT INFORMATION
  Report Type: 
  Country: None (occurrence: None)
  Receive Date: 20050323
  Receipt Date: 20050304
  Transmission Date: 20050727
  Serious: Yes (Hospitalization)
  Sender: FDA-Public Use
  Company Number: FR_050305966

PATIENT
  Age: 36 Year
  Sex: Male

DRUGS (4)
  1. ZYPREXA [Suspect]
     Indication: BORDERLINE PERSONALITY DISORDER
     Dosage: 10 MG /1 DAY
     Dates: start: 20010101
  2. OXAZEPAM [Concomitant]
  3. TERCIAN (CYAMEMAZINE0 [Concomitant]
  4. IMOVANE (ZOPICLONE) [Concomitant]

REACTIONS (5)
  - DIABETES MELLITUS NON-INSULIN-DEPENDENT [None]
  - DIZZINESS [None]
  - GENERAL PHYSICAL CONDITION ABNORMAL [None]
  - HEPATOCELLULAR DAMAGE [None]
  - WEIGHT INCREASED [None]
